FAERS Safety Report 20484956 (Version 1)
Quarter: 2022Q1

REPORT INFORMATION
  Report Type: Spontaneous
  Country: US (occurrence: US)
  Receive Date: 20220217
  Receipt Date: 20220217
  Transmission Date: 20220423
  Serious: No
  Sender: FDA-Public Use
  Company Number: US-SA-SAC20220215000217

PATIENT
  Sex: Female

DRUGS (6)
  1. DUPIXENT [Suspect]
     Active Substance: DUPILUMAB
     Indication: Dermatitis atopic
     Dosage: 300 MG, QOW
     Route: 058
     Dates: start: 202110
  2. EPINEPHRINE [Concomitant]
     Active Substance: EPINEPHRINE
  3. XIPAMIDE [Concomitant]
     Active Substance: XIPAMIDE
  4. MOTRIN IB [Concomitant]
     Active Substance: IBUPROFEN
  5. FLUAD QUAD [Concomitant]
     Indication: Immunisation
  6. PFIZER-BIONTECH COVID-19 VACCINE [Concomitant]
     Active Substance: TOZINAMERAN
     Indication: Immunisation

REACTIONS (1)
  - Oral herpes [Unknown]
